FAERS Safety Report 6672573-X (Version None)
Quarter: 2010Q2

REPORT INFORMATION
  Report Type: 
  Country: None (occurrence: None)
  Receive Date: 20100406
  Receipt Date: 20100319
  Transmission Date: 20101027
  Serious: Yes (Hospitalization)
  Sender: FDA-Public Use
  Company Number: DSA_42838_2010

PATIENT
  Age: 60 Year
  Sex: Male

DRUGS (2)
  1. ENALAPRIL MALEATE [Suspect]
     Indication: HYPERTENSION
     Dosage: (20 MG QD ORAL)
     Route: 048
     Dates: start: 19790101, end: 20091228
  2. ASPRO /00002701/ (ASPRO) (NOT SPECIFIED) [Suspect]
     Indication: INFLUENZA LIKE ILLNESS
     Dosage: (1 G QD ORAL)
     Route: 048
     Dates: start: 20091228, end: 20091228

REACTIONS (2)
  - LIP OEDEMA [None]
  - RASH MACULAR [None]
